FAERS Safety Report 4708987-4 (Version None)
Quarter: 2005Q3

REPORT INFORMATION
  Report Type: 
  Country: None (occurrence: None)
  Receive Date: 20050707
  Receipt Date: 20050624
  Transmission Date: 20060218
  Serious: Yes (Hospitalization)
  Sender: FDA-Public Use
  Company Number: 200512622BCC

PATIENT
  Sex: Male

DRUGS (1)
  1. BAYER MUSCLE + JOINT CREAM [Suspect]
     Dosage: TOIPICAL, FEW DAYS
     Route: 061

REACTIONS (3)
  - OEDEMA GENITAL [None]
  - PENILE ABSCESS [None]
  - PENILE SWELLING [None]
